FAERS Safety Report 19402444 (Version 1)
Quarter: 2021Q2

REPORT INFORMATION
  Report Type: Spontaneous
  Country: US (occurrence: US)
  Receive Date: 20210611
  Receipt Date: 20210611
  Transmission Date: 20210717
  Serious: No
  Sender: FDA-Public Use
  Company Number: US-BEH-2021132656

PATIENT
  Age: 62 Year
  Sex: Female

DRUGS (2)
  1. HIZENTRA [Suspect]
     Active Substance: HUMAN IMMUNOGLOBULIN G
     Indication: RHEUMATOID ARTHRITIS
  2. HIZENTRA [Suspect]
     Active Substance: HUMAN IMMUNOGLOBULIN G
     Indication: IMMUNODEFICIENCY COMMON VARIABLE
     Dosage: 12 GRAM, QW
     Route: 058
     Dates: start: 20210513

REACTIONS (6)
  - Infusion site bruising [Unknown]
  - Peripheral swelling [Recovered/Resolved]
  - No adverse event [Unknown]
  - Infusion site erythema [Unknown]
  - Infusion site mass [Unknown]
  - Off label use [Unknown]

NARRATIVE: CASE EVENT DATE: 202105
